FAERS Safety Report 6018627-2 (Version None)
Quarter: 2008Q4

REPORT INFORMATION
  Report Type: 
  Country: None (occurrence: None)
  Receive Date: 20081223
  Receipt Date: 20081212
  Transmission Date: 20090506
  Serious: Yes (Hospitalization)
  Sender: FDA-Public Use
  Company Number: US-BAXTER-2008BH013793

PATIENT
  Age: 68 Year
  Sex: Female

DRUGS (2)
  1. DIANEAL [Suspect]
     Indication: CONGENITAL CYSTIC KIDNEY DISEASE
     Route: 033
  2. DIANEAL [Suspect]
     Indication: CONGENITAL CYSTIC KIDNEY DISEASE
     Route: 033

REACTIONS (2)
  - CONGENITAL CYSTIC KIDNEY DISEASE [None]
  - DISCOMFORT [None]
